FAERS Safety Report 4556964-9 (Version None)
Quarter: 2005Q1

REPORT INFORMATION
  Report Type: 
  Country: None (occurrence: None)
  Receive Date: 20050118
  Receipt Date: 20050107
  Transmission Date: 20050727
  Serious: Yes (Hospitalization)
  Sender: FDA-Public Use
  Company Number: 044-0981-M000002

PATIENT
  Age: 64 Year
  Sex: Male
  Weight: 91 kg

DRUGS (11)
  1. ATORVASTATIN                    (ATORVASTATIN) [Suspect]
     Indication: HYPERLIPIDAEMIA
     Dosage: SEE IMAGE
     Route: 048
     Dates: start: 19990805, end: 19991013
  2. ATORVASTATIN                    (ATORVASTATIN) [Suspect]
     Indication: HYPERLIPIDAEMIA
     Dosage: SEE IMAGE
     Route: 048
     Dates: start: 19991014
  3. WARFARIN SODIUM [Concomitant]
  4. NICORANDIL       (NICORANDIL) [Concomitant]
  5. FUROSEMIDE        (FUROSEMIDE) [Concomitant]
  6. RANITIDINE [Concomitant]
  7. GLYCERYL TRINITRATE PATCH           (GLYCERYL TRINITRATE) [Concomitant]
  8. CARVEDILOL [Concomitant]
  9. ASPIRIN [Concomitant]
  10. POTASSIUM CHLORIDE [Concomitant]
  11. DILTIAZEM HYDROCHLORIDE [Concomitant]

REACTIONS (17)
  - ABDOMINAL PAIN [None]
  - ALANINE AMINOTRANSFERASE INCREASED [None]
  - ASPARTATE AMINOTRANSFERASE INCREASED [None]
  - BRADYCARDIA [None]
  - CHOLECYSTITIS [None]
  - CHOLELITHIASIS [None]
  - DISEASE RECURRENCE [None]
  - DIVERTICULUM [None]
  - FALL [None]
  - GALLBLADDER PERFORATION [None]
  - JAUNDICE [None]
  - LIVER DISORDER [None]
  - LOWER RESPIRATORY TRACT INFECTION [None]
  - MUSCULOSKELETAL CHEST PAIN [None]
  - PNEUMONIA [None]
  - POSTOPERATIVE INFECTION [None]
  - STERNAL INJURY [None]
